FAERS Safety Report 9702299 (Version 2)
Quarter: 2013Q4

REPORT INFORMATION
  Report Type: Spontaneous
  Country: US (occurrence: ES)
  Receive Date: 20131121
  Receipt Date: 20131202
  Transmission Date: 20140711
  Serious: Yes (Other)
  Sender: FDA-Public Use
  Company Number: ES-FRI-1000051588

PATIENT
  Age: 87 Year
  Sex: Female

DRUGS (3)
  1. ROFLUMILAST [Suspect]
     Indication: CHRONIC OBSTRUCTIVE PULMONARY DISEASE
     Dosage: 500 MG
     Route: 048
     Dates: start: 20130123, end: 20130222
  2. ALDOCUMAR [Suspect]
     Indication: ATRIAL FIBRILLATION
     Route: 048
  3. DIGOXINA [Suspect]
     Indication: ATRIAL FIBRILLATION
     Dosage: 500 MCG
     Route: 048

REACTIONS (1)
  - Lower gastrointestinal haemorrhage [Recovered/Resolved]
